FAERS Safety Report 8836964 (Version 2)
Quarter: 2013Q1

REPORT INFORMATION
  Report Type: Spontaneous
  Country: US (occurrence: US)
  Receive Date: 20121012
  Receipt Date: 20130118
  Transmission Date: 20140127
  Serious: Yes (Other)
  Sender: FDA-Public Use
  Company Number: US-ABBOTT-12P-163-0992607-00

PATIENT
  Sex: Male
  Weight: 87.62 kg

DRUGS (3)
  1. HUMIRA [Suspect]
     Indication: ANKYLOSING SPONDYLITIS
     Dates: start: 20100201, end: 20120411
  2. SULFASALAZIN [Suspect]
     Indication: PRODUCT USED FOR UNKNOWN INDICATION
  3. NSAID^S [Suspect]
     Indication: PRODUCT USED FOR UNKNOWN INDICATION
     Dosage: OCCASIONAL

REACTIONS (4)
  - IgA nephropathy [Unknown]
  - Protein urine present [Unknown]
  - Blood creatinine increased [Unknown]
  - Colitis [Unknown]
